FAERS Safety Report 5831234-7 (Version None)
Quarter: 2008Q3

REPORT INFORMATION
  Report Type: 
  Country: None (occurrence: None)
  Receive Date: 20080801
  Receipt Date: 20080603
  Transmission Date: 20090109
  Serious: No
  Sender: FDA-Public Use
  Company Number: US-BRISTOL-MYERS SQUIBB COMPANY-14096556

PATIENT
  Age: 72 Year
  Sex: Male
  Weight: 95 kg

DRUGS (5)
  1. COUMADIN [Suspect]
     Indication: CARDIAC FAILURE CONGESTIVE
     Dosage: DOSE INCREASED TO 5MG.
  2. COUMADIN [Suspect]
     Indication: CARDIAC PACEMAKER INSERTION
     Dosage: DOSE INCREASED TO 5MG.
  3. FENTANYL-100 [Suspect]
  4. DILTIAZEM HCL [Concomitant]
  5. GLYBURIDE [Concomitant]

REACTIONS (1)
  - URTICARIA [None]
